FAERS Safety Report 15803561 (Version 3)
Quarter: 2022Q4

REPORT INFORMATION
  Report Type: Spontaneous
  Country: US (occurrence: US)
  Receive Date: 20190109
  Receipt Date: 20221206
  Transmission Date: 20230113
  Serious: No
  Sender: FDA-Public Use
  Company Number: US-SUNOVION-2019SUN000045

PATIENT
  Sex: Female

DRUGS (3)
  1. LONHALA MAGNAIR [Suspect]
     Active Substance: GLYCOPYRROLATE
     Indication: Chronic obstructive pulmonary disease
     Dosage: 25 ?G, BID
     Route: 055
     Dates: start: 2018
  2. ALBUTEROL [Suspect]
     Active Substance: ALBUTEROL
     Dosage: UNK
     Route: 065
  3. VENTOLIN HFA [Concomitant]
     Active Substance: ALBUTEROL SULFATE
     Dosage: UNK
     Route: 065

REACTIONS (8)
  - Throat irritation [Unknown]
  - Airway burns [Unknown]
  - Dysphagia [Unknown]
  - Odynophagia [Unknown]
  - Painful respiration [Unknown]
  - Emotional disorder [Unknown]
  - Crying [Unknown]
  - Vocal cord disorder [Unknown]
